FAERS Safety Report 14682275 (Version 2)
Quarter: 2018Q2

REPORT INFORMATION
  Report Type: Spontaneous
  Country: US (occurrence: US)
  Receive Date: 20180326
  Receipt Date: 20180423
  Transmission Date: 20180711
  Serious: No
  Sender: FDA-Public Use
  Company Number: US-SUNOVION-2018SUN000968

PATIENT
  Sex: Male
  Weight: 53.52 kg

DRUGS (9)
  1. BREO ELLIPTA [Concomitant]
     Active Substance: FLUTICASONE FUROATE\VILANTEROL TRIFENATATE
     Dosage: 100/25 INHALATION
     Route: 055
  2. ELIQUIS [Concomitant]
     Active Substance: APIXABAN
     Dosage: 2.5 MG, UNK
     Route: 048
  3. GABAPENTIN. [Concomitant]
     Active Substance: GABAPENTIN
     Dosage: 100 MG, UNK
     Route: 048
  4. LONHALA MAGNAIR [Suspect]
     Active Substance: GLYCOPYRROLATE
     Indication: CHRONIC OBSTRUCTIVE PULMONARY DISEASE
     Dosage: 25 MCG/ML TWICE DAILY NEBULIZING SOLUTION
     Route: 055
     Dates: start: 20180303, end: 20180305
  5. PRILOSEC [Concomitant]
     Active Substance: OMEPRAZOLE MAGNESIUM
     Dosage: 20 MG, UNK
     Route: 048
  6. NASONEX [Concomitant]
     Active Substance: MOMETASONE FUROATE
     Dosage: 50 MCG VIA INHALATION
     Route: 055
  7. MUCINEX [Concomitant]
     Active Substance: GUAIFENESIN
     Dosage: MUCINEX ER 600 MG ORALLY
     Route: 048
  8. PREDNISONE. [Concomitant]
     Active Substance: PREDNISONE
     Dosage: 10 MG, UNK
     Route: 048
  9. CADURAMIN [Concomitant]
     Dosage: 1 MG, UNK
     Route: 048

REACTIONS (3)
  - Respiratory rate increased [Unknown]
  - Dyspnoea [Recovering/Resolving]
  - Asthenia [Unknown]
